FAERS Safety Report 16169942 (Version 3)
Quarter: 2019Q2

REPORT INFORMATION
  Report Type: Spontaneous
  Country: GB (occurrence: GB)
  Receive Date: 20190408
  Receipt Date: 20190606
  Transmission Date: 20190711
  Serious: Yes (Life-Threatening, Hospitalization, Other)
  Sender: FDA-Public Use
  Company Number: GB-MYLANLABS-06P-167-0330306-00

PATIENT
  Age: 64 Year
  Sex: Female

DRUGS (18)
  1. SECURON SR [Suspect]
     Active Substance: VERAPAMIL HYDROCHLORIDE
     Indication: ATRIAL FIBRILLATION
     Dosage: 80 MILLIGRAM, TID
     Route: 048
  2. DIGOXIN. [Interacting]
     Active Substance: DIGOXIN
     Dosage: UNK
  3. DIGOXIN. [Interacting]
     Active Substance: DIGOXIN
     Dosage: 80 MILLIGRAM
     Route: 048
  4. WARFARIN [Concomitant]
     Active Substance: WARFARIN
     Dosage: UNK
     Route: 048
  5. SOTALOL. [Interacting]
     Active Substance: SOTALOL
     Dosage: UNK
  6. SOTALOL. [Interacting]
     Active Substance: SOTALOL
     Indication: ATRIAL FIBRILLATION
     Dosage: LONG TERM
     Route: 048
  7. PERINDOPRIL [Concomitant]
     Active Substance: PERINDOPRIL
     Dosage: UNK
     Route: 048
  8. PERINDOPRIL [Concomitant]
     Active Substance: PERINDOPRIL
     Indication: ATRIAL FIBRILLATION
     Dosage: QD
  9. GLUCAGON. [Concomitant]
     Active Substance: GLUCAGON
     Dosage: UNK
     Route: 030
  10. ATROPINE. [Concomitant]
     Active Substance: ATROPINE
     Dosage: UNK
  11. DIGOXIN. [Interacting]
     Active Substance: DIGOXIN
     Indication: ATRIAL FIBRILLATION
     Dosage: 80 MILLIGRAM, ONCE
     Route: 048
  12. AMIODARONE [Concomitant]
     Active Substance: AMIODARONE
  13. VERAPAMIL [Interacting]
     Active Substance: VERAPAMIL HYDROCHLORIDE
     Indication: ATRIAL FIBRILLATION
     Dosage: 80 MILLIGRAM, QD (LONG TERM USE)
     Route: 048
  14. CALCIUM CHLORIDE. [Concomitant]
     Active Substance: CALCIUM CHLORIDE
     Dosage: UNK
  15. SOTALOL. [Interacting]
     Active Substance: SOTALOL
     Dosage: UNK
     Route: 048
  16. WARFARIN [Concomitant]
     Active Substance: WARFARIN
     Indication: PRODUCT USED FOR UNKNOWN INDICATION
     Dosage: QD
  17. FRUMIL [Concomitant]
     Active Substance: AMILORIDE HYDROCHLORIDE\FUROSEMIDE
     Indication: PRODUCT USED FOR UNKNOWN INDICATION
     Dosage: QD
  18. CO-AMILOFRUSE [Concomitant]
     Active Substance: AMILORIDE\FUROSEMIDE
     Indication: ATRIAL FIBRILLATION
     Dosage: UNK
     Route: 065

REACTIONS (28)
  - Metabolic acidosis [Recovered/Resolved]
  - Gastrointestinal sounds abnormal [Recovered/Resolved]
  - Bradycardia [Recovered/Resolved]
  - Hypotension [Recovered/Resolved]
  - Dyspnoea [Recovered/Resolved]
  - Coma scale abnormal [Recovered/Resolved]
  - Toxicity to various agents [Recovered/Resolved]
  - Abdominal discomfort [Unknown]
  - Pulse absent [Recovered/Resolved]
  - Anuria [Recovered/Resolved]
  - Renal failure [Recovered/Resolved]
  - Cardioactive drug level decreased [Recovered/Resolved]
  - Renal impairment [Recovered/Resolved]
  - Liver function test abnormal [Recovered/Resolved]
  - Cough [Recovered/Resolved]
  - Abdominal tenderness [Recovered/Resolved]
  - Abdominal pain [Recovered/Resolved]
  - Drug abuse [Unknown]
  - Overdose [Unknown]
  - Atrial fibrillation [Recovered/Resolved]
  - Cardiomegaly [Recovered/Resolved]
  - Pigmentation disorder [Recovered/Resolved]
  - Liver function test increased [Recovered/Resolved]
  - Cardiac failure [Recovered/Resolved]
  - Drug interaction [Unknown]
  - Depressed level of consciousness [Recovered/Resolved]
  - Livedo reticularis [Recovered/Resolved]
  - Hepatic enzyme increased [Recovered/Resolved]
